FAERS Safety Report 5670720-X (Version None)
Quarter: 2008Q1

REPORT INFORMATION
  Report Type: 
  Country: None (occurrence: None)
  Receive Date: 20080318
  Receipt Date: 20080313
  Transmission Date: 20080703
  Serious: Yes (Hospitalization)
  Sender: FDA-Public Use
  Company Number: PHEH2008US02393

PATIENT
  Age: 68 Year
  Sex: Female

DRUGS (2)
  1. TEKTURNA HCT [Suspect]
     Dosage: 300/12.5MG, QD
     Dates: start: 20080201
  2. TEKTURNA HCT [Suspect]
     Dosage: 300/25MG, UNK
     Dates: end: 20080301

REACTIONS (3)
  - BLOOD POTASSIUM DECREASED [None]
  - HYPONATRAEMIA [None]
  - WEIGHT DECREASED [None]
